FAERS Safety Report 8555150 (Version 2)
Quarter: 2013Q3

REPORT INFORMATION
  Report Type: Spontaneous
  Country: ZA (occurrence: ZA)
  Receive Date: 20120510
  Receipt Date: 20130918
  Transmission Date: 20140515
  Serious: No
  Sender: FDA-Public Use
  Company Number: PHHY2012ZA039082

PATIENT
  Sex: Female

DRUGS (5)
  1. TASIGNA [Suspect]
     Indication: CHRONIC MYELOID LEUKAEMIA
     Dates: start: 2011
  2. PREMARIN [Concomitant]
  3. FLIXONASE [Concomitant]
  4. STILNOX [Concomitant]
  5. NORVASC [Concomitant]

REACTIONS (1)
  - Vascular occlusion [Unknown]
